FAERS Safety Report 4541731-2 (Version None)
Quarter: 2004Q4

REPORT INFORMATION
  Report Type: 
  Country: None (occurrence: None)
  Receive Date: 20041230
  Receipt Date: 20041220
  Transmission Date: 20050328
  Serious: Yes (Death)
  Sender: FDA-Public Use
  Company Number: JP-JNJFOC-20040908770

PATIENT
  Sex: Male

DRUGS (6)
  1. DUROTEP [Suspect]
     Indication: CANCER PAIN
     Route: 062
     Dates: start: 20031215, end: 20031228
  2. BETAMETHASONE SODIUM PHOSPHATE [Concomitant]
     Indication: CANCER PAIN
     Dates: start: 20031206, end: 20031228
  3. FLURBIPROFEN AXETIL [Concomitant]
     Indication: CANCER PAIN
     Dates: start: 20031215, end: 20031229
  4. PIRENZEPINE HYDROCHLORIDE [Concomitant]
     Dates: start: 20031215, end: 20031228
  5. OCTREOTIDE ACETATE [Concomitant]
     Indication: ILEUS
     Dates: start: 20031216, end: 20031229
  6. MORPHINE HYDROCHLORIDE [Concomitant]
     Indication: CANCER PAIN
     Dates: start: 20031223, end: 20031227

REACTIONS (1)
  - DEATH [None]
